FAERS Safety Report 10264611 (Version 1)
Quarter: 2014Q2

REPORT INFORMATION
  Report Type: Spontaneous
  Country: US (occurrence: None)
  Receive Date: 20140624
  Receipt Date: 20140624
  Transmission Date: 20141212
  Serious: Yes (Other)
  Sender: FDA-Public Use
  Company Number: 201406026

PATIENT
  Sex: Male

DRUGS (1)
  1. TESTOPEL [Suspect]
     Indication: PRODUCT USED FOR UNKNOWN INDICATION
     Dosage: PELLETS
     Route: 058

REACTIONS (3)
  - Incision site swelling [None]
  - Implant site pustules [None]
  - Device expulsion [None]
